FAERS Safety Report 9688810 (Version 1)
Quarter: 2013Q4

REPORT INFORMATION
  Report Type: Spontaneous
  Country: US (occurrence: US)
  Receive Date: 20131114
  Receipt Date: 20131114
  Transmission Date: 20140711
  Serious: Yes (Other)
  Sender: FDA-Public Use
  Company Number: US-BAYER-2013-138057

PATIENT
  Age: 37 Year
  Sex: Female
  Weight: 79 kg

DRUGS (5)
  1. YASMIN [Suspect]
     Dosage: UNK
     Route: 048
  2. PREVIDENT [Concomitant]
     Dosage: 5%/1.1%
  3. ACETAMINOPHEN W/PROPOXYPHENE [Concomitant]
     Dosage: 650 / 100 MG
     Route: 048
  4. ACETAMINOPHEN W/HYDROCODONE [Concomitant]
     Dosage: 750/7.5 MG
     Route: 048
  5. PROTONIX [Concomitant]
     Dosage: AS NEEDED

REACTIONS (1)
  - Pulmonary embolism [None]
